FAERS Safety Report 8187928-4 (Version None)
Quarter: 2012Q1

REPORT INFORMATION
  Report Type: 
  Country: None (occurrence: None)
  Receive Date: 20120306
  Receipt Date: 20120227
  Transmission Date: 20120608
  Serious: Yes (Hospitalization, Other)
  Sender: FDA-Public Use
  Company Number: JP-GLAXOSMITHKLINE-B0728275A

PATIENT
  Sex: Female
  Weight: 60 kg

DRUGS (10)
  1. LOXONIN [Suspect]
     Dosage: 180MG PER DAY
     Route: 048
  2. EVISTA [Concomitant]
     Dosage: 60MG PER DAY
     Route: 048
  3. CONIEL [Concomitant]
     Dosage: 4MG PER DAY
     Route: 048
  4. RIZABEN [Concomitant]
     Dosage: 1IUAX PER DAY
     Route: 048
  5. CELESTAMINE TAB [Concomitant]
     Dosage: 1IUAX PER DAY
     Route: 048
  6. VESICARE [Concomitant]
     Dosage: 2.5MG PER DAY
     Route: 048
  7. MICARDIS [Concomitant]
     Dosage: 40MG PER DAY
     Route: 048
  8. VALTREX [Suspect]
     Dosage: 2000MG PER DAY
     Route: 048
     Dates: start: 20110619
  9. VALTREX [Suspect]
     Indication: HERPES ZOSTER
     Dosage: 3000MG PER DAY
     Route: 048
     Dates: start: 20110617, end: 20110618
  10. AZUNOL [Concomitant]
     Route: 061

REACTIONS (6)
  - ALTERED STATE OF CONSCIOUSNESS [None]
  - DISORIENTATION [None]
  - TOXIC ENCEPHALOPATHY [None]
  - DYSKINESIA [None]
  - ASTERIXIS [None]
  - RENAL IMPAIRMENT [None]
